FAERS Safety Report 6552528-6 (Version None)
Quarter: 2010Q1

REPORT INFORMATION
  Report Type: 
  Country: None (occurrence: None)
  Receive Date: 20100121
  Receipt Date: 20100115
  Transmission Date: 20100710
  Serious: Yes (Hospitalization)
  Sender: FDA-Public Use
  Company Number: WAES 1001USA01551

PATIENT
  Age: 55 Year
  Sex: Female
  Weight: 88.905 kg

DRUGS (22)
  1. PRINIVIL [Suspect]
     Indication: PRE-EXISTING CONDITION IMPROVED
     Dosage: 2.5 MG/DAILY/PO
     Route: 048
     Dates: start: 20071201, end: 20091109
  2. BLINDED THERAPY UNK [Suspect]
     Indication: THROMBOSIS PROPHYLAXIS
     Dosage: 2.5 MG/DAILY/PO
     Route: 048
     Dates: start: 20081215, end: 20090120
  3. ADVAIR DISKUS 100/50 [Concomitant]
  4. ASACOL [Concomitant]
  5. LASIX [Concomitant]
  6. PEPCID AC [Concomitant]
  7. PRILOSEC [Concomitant]
  8. RESTORIL [Concomitant]
  9. SPIRIVA [Concomitant]
  10. TYLOX [Concomitant]
  11. URSO 250 [Concomitant]
  12. XANAX [Concomitant]
  13. ZETIA [Concomitant]
  14. ZOLOFT [Concomitant]
  15. ALBUTEROL [Concomitant]
  16. ASPIRIN [Concomitant]
  17. CARVEDILOL [Concomitant]
  18. CLOPIDOGREL BISULFATE [Concomitant]
  19. ESTROGENS (UNSPECIFIED) [Concomitant]
  20. OMEGA-3 MARINE TRIGLYCERIDES [Concomitant]
  21. PREDNISONE [Concomitant]
  22. THEOPHYLLINE [Concomitant]

REACTIONS (6)
  - ANGIOEDEMA [None]
  - BUCCAL POLYP [None]
  - MASS [None]
  - MYOCARDIAL ISCHAEMIA [None]
  - NECK MASS [None]
  - TOBACCO USER [None]
